FAERS Safety Report 5647311-X (Version None)
Quarter: 2008Q1

REPORT INFORMATION
  Report Type: 
  Country: None (occurrence: None)
  Receive Date: 20080228
  Receipt Date: 20080218
  Transmission Date: 20080703
  Serious: No
  Sender: FDA-Public Use
  Company Number: 2008-172345-NL

PATIENT
  Sex: Male

DRUGS (1)
  1. CHORIONIC GONADTROPIN [Suspect]
     Indication: SUBSTANCE ABUSE
     Dosage: 5000 IU WEEKLY

REACTIONS (2)
  - RENAL FAILURE ACUTE [None]
  - SUBSTANCE ABUSE [None]
